FAERS Safety Report 19490230 (Version 4)
Quarter: 2024Q1

REPORT INFORMATION
  Report Type: Report from Study
  Country: US (occurrence: US)
  Receive Date: 20210705
  Receipt Date: 20240227
  Transmission Date: 20240410
  Serious: Yes (Other)
  Sender: FDA-Public Use
  Company Number: US-UCBSA-2020051443

PATIENT
  Age: 35 Year
  Sex: Female

DRUGS (4)
  1. CERTOLIZUMAB PEGOL [Suspect]
     Active Substance: CERTOLIZUMAB PEGOL
     Indication: Ankylosing spondylitis
     Dosage: 400 MILLIGRAM, EV 2 WEEKS(QOW)
     Dates: start: 20201128, end: 2020
  2. CERTOLIZUMAB PEGOL [Suspect]
     Active Substance: CERTOLIZUMAB PEGOL
     Indication: Crohn^s disease
     Dosage: 200 MILLIGRAM, EV 2 WEEKS(QOW)
     Dates: start: 2020, end: 202111
  3. CERTOLIZUMAB PEGOL [Suspect]
     Active Substance: CERTOLIZUMAB PEGOL
     Dosage: 400 MILLIGRAM
     Route: 058
  4. CLARITHROMYCIN [Concomitant]
     Active Substance: CLARITHROMYCIN
     Indication: Urinary tract infection

REACTIONS (17)
  - Gingival cyst [Recovered/Resolved]
  - Cyst removal [Recovered/Resolved]
  - Injection site urticaria [Recovered/Resolved]
  - Ovarian cyst [Unknown]
  - Uterine leiomyoma [Unknown]
  - Unevaluable event [Not Recovered/Not Resolved]
  - Anxiety [Recovered/Resolved]
  - Musculoskeletal stiffness [Not Recovered/Not Resolved]
  - Muscular weakness [Not Recovered/Not Resolved]
  - Injection site pain [Not Recovered/Not Resolved]
  - Smear cervix abnormal [Not Recovered/Not Resolved]
  - Urinary tract infection [Not Recovered/Not Resolved]
  - Contusion [Not Recovered/Not Resolved]
  - Arthralgia [Unknown]
  - Fatigue [Not Recovered/Not Resolved]
  - Pain in extremity [Not Recovered/Not Resolved]
  - Drug ineffective [Unknown]

NARRATIVE: CASE EVENT DATE: 20201128
